FAERS Safety Report 22522485 (Version 1)
Quarter: 2023Q2

REPORT INFORMATION
  Report Type: Report from Study
  Country: CA (occurrence: CA)
  Receive Date: 20230605
  Receipt Date: 20230605
  Transmission Date: 20230721
  Serious: Yes (Other)
  Sender: FDA-Public Use
  Company Number: CA-002147023-NVSC2022CA183698

PATIENT
  Age: 62 Year
  Sex: Female

DRUGS (2)
  1. HYRIMOZ [Suspect]
     Active Substance: ADALIMUMAB-ADAZ
     Indication: Crohn^s disease
     Dosage: 40 MG
     Route: 058
     Dates: start: 20220113
  2. PURELL [Concomitant]
     Active Substance: ALCOHOL
     Indication: Product used for unknown indication
     Dosage: UNK
     Route: 065

REACTIONS (7)
  - Fear of disease [Unknown]
  - Toothache [Unknown]
  - Swelling [Recovering/Resolving]
  - Gingivitis [Unknown]
  - Constipation [Unknown]
  - Faeces hard [Unknown]
  - Product dose omission issue [Not Recovered/Not Resolved]
